FAERS Safety Report 10351284 (Version 2)
Quarter: 2014Q3

REPORT INFORMATION
  Report Type: Spontaneous
  Country: CA (occurrence: CA)
  Receive Date: 20140730
  Receipt Date: 20140813
  Transmission Date: 20150326
  Serious: Yes (Death)
  Sender: FDA-Public Use
  Company Number: CA-GLAXOSMITHKLINE-A1082751A

PATIENT
  Sex: Female

DRUGS (3)
  1. EYE DROP [Concomitant]
     Active Substance: UNSPECIFIED INGREDIENT
  2. TAFINLAR [Suspect]
     Active Substance: DABRAFENIB MESYLATE
     Indication: METASTATIC MALIGNANT MELANOMA
     Dosage: 300MG PER DAY
     Route: 065
  3. TYLENOL WITH CODEINE [Suspect]
     Active Substance: ACETAMINOPHEN\CODEINE PHOSPHATE
     Indication: PRODUCT USED FOR UNKNOWN INDICATION
     Route: 065

REACTIONS (17)
  - Hyperhidrosis [Unknown]
  - Peripheral swelling [Unknown]
  - Vomiting [Unknown]
  - Abdominal pain upper [Unknown]
  - Fatigue [Unknown]
  - Constipation [Unknown]
  - Neoplasm skin [Unknown]
  - Thyroid neoplasm [Unknown]
  - Acne [Unknown]
  - Death [Fatal]
  - Asthenia [Unknown]
  - Alopecia [Unknown]
  - Erythema [Unknown]
  - Listless [Unknown]
  - Thyroidectomy [Unknown]
  - Pyrexia [Recovered/Resolved]
  - Chills [Unknown]
